FAERS Safety Report 22298205 (Version 3)
Quarter: 2023Q2

REPORT INFORMATION
  Report Type: Report from Study
  Country: GB (occurrence: GB)
  Receive Date: 20230509
  Receipt Date: 20230612
  Transmission Date: 20230721
  Serious: Yes (Hospitalization, Other)
  Sender: FDA-Public Use
  Company Number: GB-ROCHE-1761670

PATIENT
  Age: 67 Year
  Sex: Female

DRUGS (71)
  1. DOCETAXEL [Suspect]
     Active Substance: DOCETAXEL
     Indication: HER2 positive breast cancer
     Dosage: 200 MILLIGRAM, TID (20-NOV-2017)
     Route: 042
     Dates: end: 20180101
  2. DOCETAXEL [Suspect]
     Active Substance: DOCETAXEL
     Dosage: 180 MILLIGRAM, TID
     Route: 042
     Dates: start: 20180122
  3. DOCETAXEL [Suspect]
     Active Substance: DOCETAXEL
     Dosage: 140 MILLIGRAM, TID
     Route: 042
     Dates: start: 20150811, end: 20151203
  4. TRASTUZUMAB [Suspect]
     Active Substance: TRASTUZUMAB
     Indication: HER2 positive breast cancer
     Dosage: 567 MILLIGRAM (LOADING DOSE)  (7-JAN-2016)
     Route: 042
     Dates: end: 20160107
  5. TRASTUZUMAB [Suspect]
     Active Substance: TRASTUZUMAB
     Dosage: 441 MILLIGRAM, 3XW
     Route: 042
     Dates: start: 20160127, end: 20161119
  6. TRASTUZUMAB [Suspect]
     Active Substance: TRASTUZUMAB
     Dosage: 504 MILLIGRAM
     Route: 042
     Dates: start: 20210211, end: 20210211
  7. TRASTUZUMAB [Suspect]
     Active Substance: TRASTUZUMAB
     Dosage: 441 MILLIGRAM, 3XW
     Route: 042
     Dates: start: 20151112
  8. TRASTUZUMAB [Suspect]
     Active Substance: TRASTUZUMAB
     Dosage: 567 MILLIGRAM (LOADING DOSE)
     Route: 042
     Dates: start: 20150811, end: 20150811
  9. TRASTUZUMAB [Suspect]
     Active Substance: TRASTUZUMAB
     Dosage: 693 MILLIGRAM (LOADING DOSE)
     Route: 042
     Dates: start: 20171120
  10. TRASTUZUMAB [Suspect]
     Active Substance: TRASTUZUMAB
     Dosage: 378 MILLIGRAM, 4XW
     Route: 042
     Dates: start: 20210304, end: 20210729
  11. TRASTUZUMAB [Suspect]
     Active Substance: TRASTUZUMAB
     Dosage: 515 MILLIGRAM, 4XW
     Route: 042
     Dates: start: 20171211, end: 20190329
  12. TRASTUZUMAB [Suspect]
     Active Substance: TRASTUZUMAB
     Dosage: 420 MILLIGRAM, 3XW
     Route: 042
     Dates: start: 20150903, end: 20151015
  13. TRASTUZUMAB [Suspect]
     Active Substance: TRASTUZUMAB
     Dosage: 1200 MILLIGRAM, 3XW
     Route: 058
     Dates: start: 20210819, end: 20221215
  14. PERTUZUMAB [Suspect]
     Active Substance: PERTUZUMAB
     Indication: HER2 positive breast cancer
     Dosage: 840 MILLIGRAM (11-FEB-2021)
     Route: 042
     Dates: end: 20210211
  15. PERTUZUMAB [Suspect]
     Active Substance: PERTUZUMAB
     Dosage: 420 MILLIGRAM, 3XW
     Route: 042
     Dates: start: 20171211, end: 20190329
  16. PERTUZUMAB [Suspect]
     Active Substance: PERTUZUMAB
     Dosage: 840 MILLIGRAM (LOADING DOSE)
     Route: 042
     Dates: start: 20171120, end: 20171120
  17. PERTUZUMAB [Suspect]
     Active Substance: PERTUZUMAB
     Dosage: 420 MILLIGRAM, 3XW
     Route: 042
     Dates: start: 20150903, end: 20151015
  18. PERTUZUMAB [Suspect]
     Active Substance: PERTUZUMAB
     Dosage: 420 MILLIGRAM, 3XW
     Route: 042
     Dates: start: 20210304, end: 20210729
  19. PERTUZUMAB [Suspect]
     Active Substance: PERTUZUMAB
     Dosage: 840 MILLIGRAM (LOADING DOSE)
     Route: 042
     Dates: start: 20150811, end: 20150811
  20. PERTUZUMAB [Suspect]
     Active Substance: PERTUZUMAB
     Dosage: 1200 MILLIGRAM, 3XW
     Route: 058
     Dates: start: 20210819, end: 20221215
  21. ADO-TRASTUZUMAB EMTANSINE [Suspect]
     Active Substance: ADO-TRASTUZUMAB EMTANSINE
     Indication: HER2 positive breast cancer
     Dosage: 260 MILLIGRAM, 3XW (14-AUG-2019)
     Route: 042
     Dates: end: 20190903
  22. ADO-TRASTUZUMAB EMTANSINE [Suspect]
     Active Substance: ADO-TRASTUZUMAB EMTANSINE
     Dosage: 200 MILLIGRAM, 3XW
     Route: 042
     Dates: start: 20190904
  23. ADO-TRASTUZUMAB EMTANSINE [Suspect]
     Active Substance: ADO-TRASTUZUMAB EMTANSINE
     Dosage: 300 MILLIGRAM, 3XW
     Route: 042
     Dates: start: 20190716, end: 20190813
  24. AMOXICILLIN [Concomitant]
     Active Substance: AMOXICILLIN
     Indication: Lower respiratory tract infection
     Dosage: 500 MILLIGRAM, QD (05-MAY-2019)
     Route: 048
     Dates: end: 20190509
  25. CARBOCYSTEINE [Concomitant]
     Active Substance: CARBOCYSTEINE
     Indication: Lower respiratory tract infection
     Dosage: 750 MILLIGRAM, TID (09-MAY-2019)
     Route: 048
     Dates: end: 20190515
  26. CLARITHROMYCIN [Concomitant]
     Active Substance: CLARITHROMYCIN
     Dosage: 500 MILLIGRAM, QD (28-DEC-2017)
     Route: 048
     Dates: end: 20180103
  27. AMOXICILLIN\CLAVULANATE POTASSIUM [Concomitant]
     Active Substance: AMOXICILLIN\CLAVULANATE POTASSIUM
     Indication: Lower respiratory tract infection
     Dosage: 625 MILLIGRAM, QD (09-MAY-2019)
     Route: 048
     Dates: end: 20190515
  28. DEXAMETHASONE [Concomitant]
     Active Substance: DEXAMETHASONE
     Dosage: 8 MILLIGRAM (3 DAYS ONLY,29-DEC-2015)
     Route: 048
     Dates: end: 20151231
  29. DEXAMETHASONE [Concomitant]
     Active Substance: DEXAMETHASONE
     Dosage: 8 MILLIGRAM (3 DAYS ONLY)
     Route: 048
     Dates: start: 20150809, end: 20150811
  30. DEXAMETHASONE [Concomitant]
     Active Substance: DEXAMETHASONE
     Dosage: 8 MILLIGRAM (3 DAYS ONLY)
     Route: 048
     Dates: start: 20151229, end: 20151231
  31. DEXAMETHASONE [Concomitant]
     Active Substance: DEXAMETHASONE
     Dosage: 8 MILLIGRAM (3 DAYS ONLY)
     Route: 048
     Dates: start: 20151011, end: 20151013
  32. DEXAMETHASONE [Concomitant]
     Active Substance: DEXAMETHASONE
     Dosage: 8 MILLIGRAM (3 DAYS ONLY)
     Route: 048
     Dates: start: 20150902, end: 20150904
  33. DEXAMETHASONE [Concomitant]
     Active Substance: DEXAMETHASONE
     Dosage: 8 MILLIGRAM (3 DAYS ONLY)
     Route: 048
     Dates: start: 20151015, end: 20151017
  34. FILGRASTIM [Concomitant]
     Active Substance: FILGRASTIM
     Dosage: UNK (FOR 5 DAYS ONLY)
     Route: 058
     Dates: start: 20151203, end: 20151203
  35. FRAGMIN [Concomitant]
     Active Substance: DALTEPARIN SODIUM
     Dosage: 15000 INTERNATIONAL UNIT, QD (15000 UNIT EVERY DAY)
     Route: 058
     Dates: start: 20150721, end: 201601
  36. GABAPENTIN [Concomitant]
     Active Substance: GABAPENTIN
     Dosage: 100 MILLIGRAM, QD (2 CAPSULES AT NIGHT, 1 CAPSULE 3 DAYS)
     Route: 048
     Dates: start: 20150924, end: 20150930
  37. GABAPENTIN [Concomitant]
     Active Substance: GABAPENTIN
     Dosage: 100 MILLIGRAM, QD (ONE AT NIGHT,2 CAPSULES 1 WEEK)
     Route: 048
     Dates: start: 20150921, end: 20150923
  38. LANSOPRAZOLE [Concomitant]
     Active Substance: LANSOPRAZOLE
     Dosage: 30 MILLIGRAM, QD
     Route: 048
     Dates: start: 20150921
  39. LANSOPRAZOLE [Concomitant]
     Active Substance: LANSOPRAZOLE
     Dosage: 30 MILLIGRAM, QD
     Route: 048
     Dates: start: 20150723, end: 20150819
  40. LEVOTHYROXINE SODIUM [Concomitant]
     Active Substance: LEVOTHYROXINE SODIUM
     Dosage: 100 MICROGRAM, QD (ONE TABLET A DAYS)
     Route: 048
     Dates: start: 20150723
  41. LEVOTHYROXINE SODIUM [Concomitant]
     Active Substance: LEVOTHYROXINE SODIUM
     Dosage: 50 MICROGRAM, QD (ONE A DAY)
     Route: 048
     Dates: start: 20150723
  42. METOCLOPRAMIDE [Concomitant]
     Active Substance: METOCLOPRAMIDE
     Dosage: 10 MILLIGRAM (AS NEEDED)
     Route: 048
     Dates: start: 20151015, end: 20151015
  43. METOCLOPRAMIDE [Concomitant]
     Active Substance: METOCLOPRAMIDE
     Dosage: 8 MILLIGRAM, QD (1 DAY ONLY)
     Route: 048
     Dates: start: 20151012, end: 20151012
  44. MORPHINE [Concomitant]
     Active Substance: MORPHINE
     Dosage: 10 MILLIGRAM, BID (2 TABLETS TWICE DAILY)
     Route: 048
     Dates: start: 20150714, end: 20150714
  45. MORPHINE [Concomitant]
     Active Substance: MORPHINE
     Dosage: 10 MILLIGRAM, QD
     Route: 048
     Dates: start: 20150902, end: 20150902
  46. MORPHINE [Concomitant]
     Active Substance: MORPHINE
     Dosage: 10 MILLIGRAM, QD (3 TABLETS)
     Route: 048
     Dates: start: 20150904, end: 20151001
  47. MORPHINE [Concomitant]
     Active Substance: MORPHINE
     Dosage: 10 MILLIGRAM, QD (3 TABLETS)
     Route: 048
     Dates: start: 20150816, end: 20150912
  48. MORPHINE [Concomitant]
     Active Substance: MORPHINE
     Dosage: 10 MILLIGRAM (2 TABLETS)
     Route: 048
     Dates: start: 20150815, end: 20150815
  49. MORPHINE [Concomitant]
     Active Substance: MORPHINE
     Dosage: 10 MILLIGRAM, QD (2 TABLETS)
     Route: 048
     Dates: start: 20150903
  50. MORPHINE [Concomitant]
     Active Substance: MORPHINE
     Dosage: 10 MILLIGRAM, QD
     Route: 048
     Dates: start: 20150715
  51. MORPHINE [Concomitant]
     Active Substance: MORPHINE
     Dosage: 10 MILLIGRAM, QD
     Route: 048
     Dates: start: 20150713, end: 20150713
  52. MORPHINE [Concomitant]
     Active Substance: MORPHINE
     Dosage: 10 MILLIGRAM, QD (2 TABLETS )
     Route: 048
     Dates: start: 20150903, end: 20150903
  53. MORPHINE SULFATE [Concomitant]
     Active Substance: MORPHINE SULFATE
     Dosage: 5 MILLIGRAM (2 PACKETS OF 100 MLS-5ML QDS)
     Route: 048
     Dates: start: 20150814
  54. ONDANSETRON [Concomitant]
     Active Substance: ONDANSETRON
     Dosage: 8 MILLIGRAM
     Route: 048
     Dates: start: 20150810, end: 20150810
  55. ONDANSETRON [Concomitant]
     Active Substance: ONDANSETRON
     Dosage: 8 MILLIGRAM, QD (FOR ONE DAY ONLY)
     Route: 048
     Dates: start: 20150903, end: 20150903
  56. ACETAMINOPHEN [Concomitant]
     Active Substance: ACETAMINOPHEN
     Dosage: 1 GRAM, QD (1 DAY ONLY)
     Route: 048
     Dates: start: 20151203, end: 20151203
  57. ACETAMINOPHEN [Concomitant]
     Active Substance: ACETAMINOPHEN
     Dosage: 1 GRAM, QD (1 DAY ONLY)
     Route: 048
     Dates: start: 20150810, end: 20150810
  58. ACETAMINOPHEN [Concomitant]
     Active Substance: ACETAMINOPHEN
     Dosage: 1 GRAM, QD (1 DAY ONLY)
     Route: 048
     Dates: start: 20150924, end: 20150924
  59. ACETAMINOPHEN [Concomitant]
     Active Substance: ACETAMINOPHEN
     Dosage: 1 GRAM, QD (1 DAY ONLY)
     Route: 048
     Dates: start: 20151015, end: 20151015
  60. ACETAMINOPHEN [Concomitant]
     Active Substance: ACETAMINOPHEN
     Dosage: 1 GRAM, QD (1 DAY ONLY)
     Route: 048
     Dates: start: 20150903, end: 20150903
  61. ALBUTEROL [Concomitant]
     Active Substance: ALBUTEROL
     Indication: Lower respiratory tract infection
     Dosage: UNK (PRN (ASNEEDED))
     Route: 048
     Dates: start: 20190509, end: 20190515
  62. SIMPLE LINCTUS [Concomitant]
     Active Substance: AMARANTH\CHLOROFORM\CITRIC ACID MONOHYDRATE\PIMPINELLA ANISUM WHOLE
     Indication: Influenza
     Dosage: 200 MILLIGRAM, TID (1 X 5 ML SPOON 3 TIMES A DAY)
     Route: 048
     Dates: start: 20151104, end: 20151119
  63. SIMPLE LINCTUS [Concomitant]
     Active Substance: AMARANTH\CHLOROFORM\CITRIC ACID MONOHYDRATE\PIMPINELLA ANISUM WHOLE
     Dosage: 200 MILLIGRAM (1 X 5 ML SPOON 3 TIMES A DAY)
     Route: 048
     Dates: start: 20151109, end: 20151119
  64. ZOPICLONE [Concomitant]
     Active Substance: ZOPICLONE
     Dosage: 3.75 MILLIGRAM
     Route: 048
     Dates: start: 20150812, end: 20150908
  65. DOXYCYCLINE [Concomitant]
     Active Substance: DOXYCYCLINE
     Dosage: 100 MILLIGRAM, BID (100 MG, TWICE A DAY.)
     Route: 048
     Dates: start: 20181014, end: 20181020
  66. COTRIMOXAZOLE [Concomitant]
     Active Substance: SULFAMETHOXAZOLE\TRIMETHOPRIM
     Dosage: 960 MILLIGRAM, QD (960 MG, MULTIPLE 1 DAYS)
     Route: 048
     Dates: start: 20201222, end: 20210104
  67. ASTRAZENECA COVID-19 VACCINE [Concomitant]
     Active Substance: AZD-1222
     Dosage: 0.5 MILLILITER, QD
     Route: 030
     Dates: start: 20210424, end: 20210424
  68. ASTRAZENECA COVID-19 VACCINE [Concomitant]
     Active Substance: AZD-1222
     Dosage: 0.5 MILLILITER, QD
     Route: 030
     Dates: start: 20210206, end: 20210206
  69. CLOPIDOGREL [Concomitant]
     Active Substance: CLOPIDOGREL BISULFATE
     Dosage: 7.5 MILLIGRAM, QD (7.5 MG, SINGLE 1 DAYS), START DATE: 24-OCT-2022
     Route: 048
  70. SENNA [Concomitant]
     Active Substance: SENNA LEAF\SENNOSIDES\SENNOSIDES A AND B
     Dosage: 15 MILLIGRAM, QD (START DATE: 23-JAN-2023)
     Route: 048
  71. NICOTINE [Concomitant]
     Active Substance: NICOTINE
     Dosage: 15 MILLIGRAM, QD (START DATE: 23-JAN-2023)
     Route: 062
     Dates: end: 20230130

REACTIONS (6)
  - Peripheral ischaemia [Recovering/Resolving]
  - Peripheral arterial occlusive disease [Recovered/Resolved]
  - Peripheral coldness [Recovered/Resolved]
  - Localised infection [Recovered/Resolved]
  - Dry skin [Recovered/Resolved]
  - Fatigue [Recovered/Resolved]

NARRATIVE: CASE EVENT DATE: 20151210
